FAERS Safety Report 4919266-4 (Version None)
Quarter: 2006Q1

REPORT INFORMATION
  Report Type: 
  Country: None (occurrence: None)
  Receive Date: 20060215
  Receipt Date: 20060207
  Transmission Date: 20060701
  Serious: Yes (Death, Hospitalization)
  Sender: FDA-Public Use
  Company Number: 163-20785-0512029

PATIENT
  Age: 70 Year
  Sex: Male

DRUGS (6)
  1. THALOMID [Suspect]
     Indication: MYELODYSPLASTIC SYNDROME
     Dosage: 100MG TO 400MG, DAILY, ORAL
     Route: 048
     Dates: start: 20051103, end: 20060105
  2. CHEMOTHERAPY [Suspect]
     Indication: MYELODYSPLASTIC SYNDROME
  3. AMPICILLIN [Concomitant]
  4. BACTRIM DS [Concomitant]
  5. DOXYCYCLINE [Concomitant]
  6. ZOSYN [Concomitant]

REACTIONS (7)
  - APHAGIA [None]
  - DISEASE PROGRESSION [None]
  - DYSGEUSIA [None]
  - LEUKAEMIA [None]
  - RENAL FAILURE [None]
  - RESPIRATORY DISORDER [None]
  - RESPIRATORY FAILURE [None]
